FAERS Safety Report 5988150-X (Version None)
Quarter: 2008Q4

REPORT INFORMATION
  Report Type: 
  Country: None (occurrence: None)
  Receive Date: 20081208
  Receipt Date: 20081208
  Transmission Date: 20090506
  Serious: Yes (Other)
  Sender: FDA-Public Use
  Company Number: None

PATIENT
  Age: 33 Year
  Sex: Female
  Weight: 74.8435 kg

DRUGS (1)
  1. CETIRIZINE HYDROCHLORIDE [Suspect]
     Indication: HYPERSENSITIVITY
     Dosage: 1 TABLET DAILY PO
     Route: 048
     Dates: start: 20070801, end: 20081206

REACTIONS (3)
  - DRUG WITHDRAWAL SYNDROME [None]
  - PRURITUS GENERALISED [None]
  - URTICARIA [None]
